FAERS Safety Report 9168946 (Version 1)
Quarter: 2013Q1

REPORT INFORMATION
  Report Type: Spontaneous
  Country: US (occurrence: None)
  Receive Date: 20130314
  Receipt Date: 20130314
  Transmission Date: 20140127
  Serious: Yes (Hospitalization)
  Sender: FDA-Public Use
  Company Number: None

PATIENT
  Age: 56 Year
  Sex: Male
  Weight: 88.5 kg

DRUGS (2)
  1. HYDROXYCHLOROQUINE [Suspect]
     Dosage: 200MG TABLETS-?600MG DOSE BID 047?1-22-1 THROUGH 2-16-13
     Dates: end: 20130216
  2. ALDESLEUKIN [Suspect]
     Dosage: 600,000INTERNATIONAL UNITS/KG/DOSE Q8HOURS 041
     Dates: start: 20130205, end: 20130208

REACTIONS (4)
  - Pneumonia [None]
  - Dyspnoea [None]
  - Pancreatitis acute [None]
  - Productive cough [None]
